FAERS Safety Report 18979516 (Version 2)
Quarter: 2022Q4

REPORT INFORMATION
  Report Type: Spontaneous
  Country: US (occurrence: US)
  Receive Date: 20210308
  Receipt Date: 20221012
  Transmission Date: 20230113
  Serious: Yes (Death, Other)
  Sender: FDA-Public Use
  Company Number: US-SA-SAC20210303000698

PATIENT
  Age: 79 Year
  Sex: Male

DRUGS (1)
  1. ZANTAC [Suspect]
     Active Substance: RANITIDINE HYDROCHLORIDE
     Dosage: 150 MG,  FREQUENCY: OTHER
     Dates: start: 201701, end: 201901

REACTIONS (1)
  - Bladder cancer stage II [Fatal]

NARRATIVE: CASE EVENT DATE: 20191101
